FAERS Safety Report 22654480 (Version 1)
Quarter: 2023Q2

REPORT INFORMATION
  Report Type: Report from Study
  Country: US (occurrence: US)
  Receive Date: 20230629
  Receipt Date: 20230629
  Transmission Date: 20230722
  Serious: Yes (Other)
  Sender: FDA-Public Use
  Company Number: US-BAYER-2023A040766

PATIENT
  Age: 54 Year
  Sex: Male

DRUGS (5)
  1. NUBEQA [Suspect]
     Active Substance: DAROLUTAMIDE
     Indication: Hormone-refractory prostate cancer
     Dosage: 600 MG, BID
     Route: 048
     Dates: start: 20230313
  2. ASPIRIN [Concomitant]
     Active Substance: ASPIRIN
  3. CLARITIN [Concomitant]
     Active Substance: LORATADINE
     Indication: Rhinitis allergic
  4. DOCETAXEL [Concomitant]
     Active Substance: DOCETAXEL
  5. LUPRON [Concomitant]
     Active Substance: LEUPROLIDE ACETATE
     Indication: Prostate cancer

REACTIONS (4)
  - Fatigue [None]
  - Neuropathy peripheral [Not Recovered/Not Resolved]
  - Hypotension [None]
  - Arthralgia [Not Recovered/Not Resolved]

NARRATIVE: CASE EVENT DATE: 20230313
